FAERS Safety Report 14263771 (Version 4)
Quarter: 2023Q4

REPORT INFORMATION
  Report Type: Spontaneous
  Country: DE (occurrence: DE)
  Receive Date: 20171208
  Receipt Date: 20231025
  Transmission Date: 20240109
  Serious: Yes (Hospitalization)
  Sender: FDA-Public Use
  Company Number: DE-ROCHE-1528839

PATIENT
  Age: 81 Year
  Sex: Female
  Weight: 59 kg

DRUGS (8)
  1. AVASTIN [Suspect]
     Active Substance: BEVACIZUMAB
     Dosage: 590 MILLIGRAM
     Route: 042
     Dates: start: 20140109, end: 20140109
  2. AVASTIN [Suspect]
     Active Substance: BEVACIZUMAB
     Indication: Colorectal cancer metastatic
     Dosage: 610 MILLIGRAM, BIW
     Route: 042
     Dates: start: 20131011, end: 20131011
  3. AVASTIN [Suspect]
     Active Substance: BEVACIZUMAB
     Dosage: 610 MILLIGRAM
     Route: 042
     Dates: start: 20131204, end: 20131204
  4. CAPECITABINE [Suspect]
     Active Substance: CAPECITABINE
     Dosage: NOT APPLICABLE (COMPANY^S SUSPECT PRODUCT NOT ADMINISTERED)
  5. FLUOROURACIL [Suspect]
     Active Substance: FLUOROURACIL
     Indication: Colorectal cancer metastatic
     Dosage: 4030 MILLIGRAM
     Route: 042
     Dates: start: 20140109, end: 20140109
  6. LEUCOVORIN [Suspect]
     Active Substance: LEUCOVORIN\LEUCOVORIN CALCIUM
     Indication: Colorectal cancer metastatic
     Dosage: 775 MILLIGRAM
     Route: 042
     Dates: start: 20140109, end: 20140109
  7. XELODA [Suspect]
     Active Substance: CAPECITABINE
     Indication: Colorectal cancer metastatic
     Dosage: 3000 MILLIGRAM, QOW
     Route: 048
     Dates: start: 20131011, end: 20131209
  8. ZOFRAN [Concomitant]
     Active Substance: ONDANSETRON HYDROCHLORIDE
     Indication: Nausea
     Dosage: 8 MILLIGRAM
     Route: 042
     Dates: start: 20140109, end: 20140109

REACTIONS (1)
  - Dizziness [Not Recovered/Not Resolved]

NARRATIVE: CASE EVENT DATE: 20140117
